FAERS Safety Report 4921498-6 (Version None)
Quarter: 2006Q1

REPORT INFORMATION
  Report Type: 
  Country: None (occurrence: None)
  Receive Date: 20060224
  Receipt Date: 20051208
  Transmission Date: 20060701
  Serious: Yes (Other)
  Sender: FDA-Public Use
  Company Number: US-ABBOTT-05P-163-0319075-00

PATIENT
  Sex: Male

DRUGS (3)
  1. LEXAPRO [Suspect]
     Indication: DRUG EXPOSURE DURING PREGNANCY
  2. PRENATAL VITAMINS [Concomitant]
     Indication: DRUG EXPOSURE DURING PREGNANCY
     Dates: end: 20051029
  3. ANTIDEPRESSANTS [Concomitant]
     Indication: DRUG EXPOSURE DURING PREGNANCY

REACTIONS (4)
  - HAEMOGLOBIN DECREASED [None]
  - JAUNDICE [None]
  - PLATELET COUNT INCREASED [None]
  - TACHYPNOEA [None]
